FAERS Safety Report 6881095-2 (Version None)
Quarter: 2010Q3

REPORT INFORMATION
  Report Type: 
  Country: None (occurrence: None)
  Receive Date: 20100727
  Receipt Date: 20100721
  Transmission Date: 20110219
  Serious: Yes (Death)
  Sender: FDA-Public Use
  Company Number: GB-BIOGENIDEC-2010BI015645

PATIENT
  Age: 37 Year
  Sex: Female

DRUGS (2)
  1. AVONEX [Suspect]
     Indication: PRODUCT USED FOR UNKNOWN INDICATION
     Route: 030
     Dates: start: 20070924, end: 20100101
  2. AVONEX [Suspect]
     Route: 030
     Dates: start: 20100101

REACTIONS (1)
  - MOUNTAIN SICKNESS ACUTE [None]
